FAERS Safety Report 16809476 (Version 1)
Quarter: 2019Q3

REPORT INFORMATION
  Report Type: Spontaneous
  Country: US (occurrence: US)
  Receive Date: 20190916
  Receipt Date: 20190916
  Transmission Date: 20191005
  Serious: No
  Sender: FDA-Public Use
  Company Number: US-MYLANLABS-2019M1082895

PATIENT
  Sex: Female
  Weight: 54 kg

DRUGS (1)
  1. XULANE [Suspect]
     Active Substance: ETHINYL ESTRADIOL\NORELGESTROMIN
     Indication: HORMONAL CONTRACEPTION
     Dosage: ONCE WEEKLY
     Route: 062
     Dates: start: 20190826

REACTIONS (4)
  - Hypertension [Recovered/Resolved]
  - Headache [Recovered/Resolved]
  - Physical product label issue [Unknown]
  - Neck pain [Recovered/Resolved]

NARRATIVE: CASE EVENT DATE: 20190826
